FAERS Safety Report 5408729-3 (Version None)
Quarter: 2007Q3

REPORT INFORMATION
  Report Type: 
  Country: None (occurrence: None)
  Receive Date: 20070808
  Receipt Date: 20070801
  Transmission Date: 20080115
  Serious: Yes (Hospitalization, Other)
  Sender: FDA-Public Use
  Company Number: B0468909A

PATIENT
  Age: 74 Year
  Sex: Male

DRUGS (7)
  1. AVANDIA [Suspect]
     Indication: DRUG USE FOR UNKNOWN INDICATION
     Dosage: 4MG PER DAY
     Route: 048
     Dates: start: 20060501, end: 20061201
  2. ATORVASTATIN CALCIUM [Concomitant]
     Dosage: 80MG UNKNOWN
  3. GLYBURIDE [Concomitant]
     Dosage: 5G UNKNOWN
  4. RAMIPRIL [Concomitant]
     Dosage: 5G UNKNOWN
     Route: 065
  5. ATENOLOL [Concomitant]
     Dosage: 50G UNKNOWN
     Route: 065
  6. LOSARTAN POTASSIUM [Concomitant]
     Dosage: 50G UNKNOWN
     Route: 065
  7. METFORMIN HCL [Concomitant]
     Dosage: 850G UNKNOWN
     Route: 065

REACTIONS (3)
  - ANAEMIA [None]
  - ASTHENIA [None]
  - SYNCOPE [None]
